FAERS Safety Report 4871601-1 (Version None)
Quarter: 2006Q1

REPORT INFORMATION
  Report Type: 
  Country: None (occurrence: None)
  Receive Date: 20060104
  Receipt Date: 20051228
  Transmission Date: 20060701
  Serious: Yes (Hospitalization)
  Sender: FDA-Public Use
  Company Number: FR-AVENTIS-200514381FR

PATIENT
  Age: 53 Year
  Sex: Male

DRUGS (1)
  1. BIRODOGYL [Suspect]
     Indication: TOOTHACHE
     Route: 048
     Dates: start: 20051202, end: 20051205

REACTIONS (4)
  - CHEST X-RAY ABNORMAL [None]
  - FACE OEDEMA [None]
  - PURPURA [None]
  - RASH MACULO-PAPULAR [None]
